FAERS Safety Report 16320372 (Version 1)
Quarter: 2019Q2

REPORT INFORMATION
  Report Type: Report from Study
  Country: US (occurrence: US)
  Receive Date: 20190516
  Receipt Date: 20190516
  Transmission Date: 20190711
  Serious: Yes (Other)
  Sender: FDA-Public Use
  Company Number: US-PFIZER INC-2019202633

PATIENT
  Age: 33 Year
  Sex: Male

DRUGS (4)
  1. DOBUTAMINE [Concomitant]
     Active Substance: DOBUTAMINE\DOBUTAMINE HYDROCHLORIDE
     Indication: VASCULAR RESISTANCE PULMONARY
     Dosage: UNK (INFUSIONS)
  2. MILRINONE [Suspect]
     Active Substance: MILRINONE
     Indication: PULMONARY HYPERTENSION
  3. NITROPRUSSIDE [Concomitant]
     Active Substance: NITROPRUSSIDE
     Indication: VASCULAR RESISTANCE PULMONARY
     Dosage: UNK (INFUSIONS)
  4. MILRINONE [Suspect]
     Active Substance: MILRINONE
     Indication: CARDIAC FAILURE ACUTE
     Dosage: UNK
     Route: 042

REACTIONS (1)
  - Shock [Unknown]
